FAERS Safety Report 25675082 (Version 1)
Quarter: 2025Q3

REPORT INFORMATION
  Report Type: Spontaneous
  Country: EU (occurrence: EU)
  Receive Date: 20250813
  Receipt Date: 20250813
  Transmission Date: 20251021
  Serious: Yes (Life-Threatening, Hospitalization)
  Sender: PANACEA BIOTEC PHARMA LIMITED
  Company Number: EU-PBT-010669

PATIENT
  Age: 60 Year
  Sex: Male

DRUGS (1)
  1. TACROLIMUS [Suspect]
     Active Substance: TACROLIMUS
     Indication: Prophylaxis against transplant rejection
     Route: 065
     Dates: start: 2019

REACTIONS (1)
  - Kaposi sarcoma inflammatory cytokine syndrome [Unknown]

NARRATIVE: CASE EVENT DATE: 20201001
